FAERS Safety Report 7389440-9 (Version None)
Quarter: 2011Q2

REPORT INFORMATION
  Report Type: 
  Country: None (occurrence: None)
  Receive Date: 20110401
  Receipt Date: 20110324
  Transmission Date: 20111010
  Serious: Yes (Death, Other)
  Sender: FDA-Public Use
  Company Number: ES-BRISTOL-MYERS SQUIBB COMPANY-15631856

PATIENT
  Age: 33 Year
  Sex: Male

DRUGS (4)
  1. VINCRISTINE [Suspect]
     Indication: ACUTE LYMPHOCYTIC LEUKAEMIA
     Route: 042
     Dates: start: 20101208, end: 20101208
  2. VUMON [Suspect]
     Indication: ACUTE LYMPHOCYTIC LEUKAEMIA
     Dosage: VUMON  INJ
     Route: 042
     Dates: start: 20101201, end: 20101201
  3. CYTARABINE [Suspect]
     Indication: ACUTE LYMPHOCYTIC LEUKAEMIA
     Route: 042
     Dates: start: 20101201, end: 20101201
  4. KIDROLASE [Suspect]
     Indication: ACUTE LYMPHOCYTIC LEUKAEMIA
     Dosage: KIDROLASE 1000U
     Route: 042
     Dates: start: 20101201, end: 20101201

REACTIONS (10)
  - INTRACARDIAC THROMBUS [None]
  - PULMONARY EMBOLISM [None]
  - PNEUMONIA [None]
  - OLIGURIA [None]
  - INFLUENZA A VIRUS TEST POSITIVE [None]
  - STAPHYLOCOCCAL INFECTION [None]
  - PNEUMOTHORAX [None]
  - ADENOVIRUS TEST POSITIVE [None]
  - HAEMORRHAGIC INFARCTION [None]
  - BONE MARROW FAILURE [None]
